FAERS Safety Report 25709308 (Version 1)
Quarter: 2025Q3

REPORT INFORMATION
  Report Type: Spontaneous
  Country: CH (occurrence: CH)
  Receive Date: 20250821
  Receipt Date: 20250821
  Transmission Date: 20251021
  Serious: Yes (Other)
  Sender: TEVA
  Company Number: CH-TEVA-VS-3363134

PATIENT
  Age: 44 Year

DRUGS (1)
  1. TESTOSTERONE [Suspect]
     Active Substance: TESTOSTERONE
     Indication: Product used for unknown indication
     Dosage: OVER THREE MONTH PER YEAR
     Route: 058

REACTIONS (3)
  - Drug abuse [Unknown]
  - Dilated cardiomyopathy [Recovering/Resolving]
  - Renal failure [Recovering/Resolving]
